FAERS Safety Report 10837567 (Version 1)
Quarter: 2015Q1

REPORT INFORMATION
  Report Type: Spontaneous
  Country: FR (occurrence: None)
  Receive Date: 20150218
  Receipt Date: 20150218
  Transmission Date: 20150721
  Serious: Yes (Hospitalization)
  Sender: FDA-Public Use
  Company Number: FR-ZYDUS-006728

PATIENT
  Age: 60 Year
  Sex: Male

DRUGS (1)
  1. DULOXETINE (DULOXETINE) [Suspect]
     Active Substance: DULOXETINE
     Dosage: 1.00 TIME /PER 1.ODAYS

REACTIONS (4)
  - Abdominal pain upper [None]
  - Tremor [None]
  - Dysuria [None]
  - Depression [None]
